FAERS Safety Report 7353423-5 (Version None)
Quarter: 2011Q1

REPORT INFORMATION
  Report Type: 
  Country: None (occurrence: None)
  Receive Date: 20110315
  Receipt Date: 20110311
  Transmission Date: 20110831
  Serious: Yes (Life-Threatening, Hospitalization)
  Sender: FDA-Public Use
  Company Number: GB-PFIZER INC-2011055113

PATIENT
  Age: 62 Year
  Sex: Female
  Weight: 54 kg

DRUGS (3)
  1. PERINDOPRIL [Interacting]
     Indication: HYPERTENSION
     Dosage: 4 MG, UNK
     Dates: start: 20101201
  2. CHAMPIX [Suspect]
     Dosage: UNK
     Route: 048
     Dates: start: 20101021, end: 20101224
  3. RAMIPRIL [Concomitant]
     Indication: HYPERTENSION
     Dosage: 5 MG, UNK
     Dates: start: 20101101, end: 20101201

REACTIONS (11)
  - CONFUSIONAL STATE [None]
  - INSOMNIA [None]
  - DYSARTHRIA [None]
  - DEPRESSED LEVEL OF CONSCIOUSNESS [None]
  - DRUG INTERACTION [None]
  - NAUSEA [None]
  - LOSS OF CONSCIOUSNESS [None]
  - ABNORMAL DREAMS [None]
  - SLEEP DISORDER [None]
  - SWOLLEN TONGUE [None]
  - AGITATION [None]
